FAERS Safety Report 9376179 (Version 1)
Quarter: 2013Q2

REPORT INFORMATION
  Report Type: Spontaneous
  Country: US (occurrence: None)
  Receive Date: 20130628
  Receipt Date: 20130628
  Transmission Date: 20140414
  Serious: Yes (Other)
  Sender: FDA-Public Use
  Company Number: None

PATIENT
  Sex: Female
  Weight: 49 kg

DRUGS (1)
  1. ONDANSETRON [Suspect]
     Indication: NAUSEA
     Dosage: 8MG TABLET Q8H PRN NAUSEA ORAL
     Route: 048
     Dates: start: 20110113

REACTIONS (2)
  - Product substitution issue [None]
  - Therapeutic response unexpected with drug substitution [None]
